FAERS Safety Report 6820739-8 (Version None)
Quarter: 2010Q3

REPORT INFORMATION
  Report Type: 
  Country: None (occurrence: None)
  Receive Date: 20100707
  Receipt Date: 20040422
  Transmission Date: 20110219
  Serious: No
  Sender: FDA-Public Use
  Company Number: US-PFIZER INC-2004026501

PATIENT
  Sex: Female
  Weight: 58.97 kg

DRUGS (2)
  1. ZOLOFT [Suspect]
     Indication: ANXIETY
     Route: 048
     Dates: start: 20030101
  2. ZOLOFT [Suspect]
     Indication: PHOBIA OF DRIVING

REACTIONS (5)
  - DRUG EFFECT DECREASED [None]
  - EYE DISORDER [None]
  - FATIGUE [None]
  - FEELING ABNORMAL [None]
  - SEDATION [None]
